FAERS Safety Report 16641635 (Version 1)
Quarter: 2019Q3

REPORT INFORMATION
  Report Type: Report from Study
  Country: CA (occurrence: CA)
  Receive Date: 20190729
  Receipt Date: 20190729
  Transmission Date: 20191004
  Serious: Yes (Other)
  Sender: FDA-Public Use
  Company Number: CA-ROCHE-2363288

PATIENT

DRUGS (2)
  1. OSELTAMIVIR [Suspect]
     Active Substance: OSELTAMIVIR
     Indication: INFLUENZA
     Route: 065
  2. AMANTADINE. [Concomitant]
     Active Substance: AMANTADINE HYDROCHLORIDE

REACTIONS (17)
  - Cough [Unknown]
  - Confusional state [Unknown]
  - Balance disorder [Unknown]
  - Anxiety [Unknown]
  - Insomnia [Unknown]
  - Cardiac failure congestive [Unknown]
  - Dehydration [Unknown]
  - Diarrhoea [Unknown]
  - Lower respiratory tract congestion [Unknown]
  - Hallucination [Unknown]
  - Vomiting [Unknown]
  - Nausea [Unknown]
  - Rash [Unknown]
  - Pneumonia [Unknown]
  - Aggression [Unknown]
  - Dizziness [Unknown]
  - Fatigue [Unknown]
